FAERS Safety Report 11857838 (Version 1)
Quarter: 2015Q4

REPORT INFORMATION
  Report Type: Spontaneous
  Country: US (occurrence: None)
  Receive Date: 20151221
  Receipt Date: 20151221
  Transmission Date: 20160305
  Serious: Yes (Hospitalization)
  Sender: FDA-Public Use
  Company Number: None

PATIENT
  Age: 67 Year
  Sex: Male
  Weight: 120.5 kg

DRUGS (1)
  1. ENOXAPARIN [Suspect]
     Active Substance: ENOXAPARIN
     Indication: DEEP VEIN THROMBOSIS
     Route: 058
     Dates: start: 20040204, end: 20150902

REACTIONS (9)
  - Pneumoperitoneum [None]
  - Haematocrit decreased [None]
  - Abdominal pain upper [None]
  - Diverticulum [None]
  - Abdominal distension [None]
  - Haemoglobin decreased [None]
  - Abdominal wall haematoma [None]
  - Gastric haemorrhage [None]
  - Abdominal pain [None]

NARRATIVE: CASE EVENT DATE: 20150902
